FAERS Safety Report 7821497-0 (Version None)
Quarter: 2011Q4

REPORT INFORMATION
  Report Type: 
  Country: None (occurrence: None)
  Receive Date: 20111018
  Receipt Date: 20111012
  Transmission Date: 20120403
  Serious: Yes (Other)
  Sender: FDA-Public Use
  Company Number: GXKR2011DE03053

PATIENT
  Age: 41 Year
  Sex: Female

DRUGS (1)
  1. TRIAMCINOLONE [Suspect]
     Indication: MUSCLE SPASTICITY
     Dosage: 80 MG INTRATHECAL EVERY 6 TO 8 WEEKS
     Route: 037
     Dates: start: 20100101

REACTIONS (3)
  - ADMINISTRATION SITE REACTION [None]
  - ARACHNOIDITIS [None]
  - BACK PAIN [None]
